FAERS Safety Report 5039382-9 (Version None)
Quarter: 2006Q2

REPORT INFORMATION
  Report Type: 
  Country: None (occurrence: None)
  Receive Date: 20060629
  Receipt Date: 20060622
  Transmission Date: 20061013
  Serious: Yes (Hospitalization)
  Sender: FDA-Public Use
  Company Number: CH-BRISTOL-MYERS SQUIBB COMPANY-13421235

PATIENT
  Age: 53 Year
  Sex: Female
  Weight: 90 kg

DRUGS (18)
  1. CISPLATIN [Suspect]
     Indication: ANAL CANCER
     Route: 041
     Dates: start: 20050815, end: 20050815
  2. KALIUM RETARD [Suspect]
     Indication: HYPOKALAEMIA
     Route: 048
     Dates: start: 20050823, end: 20050823
  3. POTASSIUM CHLORIDE [Suspect]
     Indication: HYPOKALAEMIA
     Route: 041
     Dates: start: 20050823, end: 20050823
  4. FLUOROURACIL [Concomitant]
     Indication: ANAL CANCER
     Route: 041
     Dates: start: 20050816, end: 20050819
  5. ASPIRIN [Concomitant]
     Route: 048
  6. PLAVIX [Concomitant]
     Route: 048
  7. TRIATEC [Concomitant]
     Route: 048
     Dates: start: 20050823
  8. GLUCOPHAGE [Concomitant]
     Route: 048
     Dates: start: 20050422
  9. BELOC [Concomitant]
     Route: 048
  10. TORSEMIDE [Concomitant]
     Route: 048
  11. LIPANTHYL [Concomitant]
     Route: 048
     Dates: start: 20050814, end: 20050823
  12. DAFALGAN [Concomitant]
     Route: 048
     Dates: start: 20050812
  13. FENTANYL [Concomitant]
     Route: 062
     Dates: start: 20050804
  14. TEMESTA [Concomitant]
     Route: 048
     Dates: start: 20050805, end: 20050824
  15. SEROPRAM [Concomitant]
     Route: 048
     Dates: start: 20050805
  16. FRAGMIN [Concomitant]
     Route: 058
     Dates: start: 20050810, end: 20050830
  17. NEXIUM [Concomitant]
     Route: 048
     Dates: start: 20050810
  18. CORVATON [Concomitant]
     Route: 048

REACTIONS (8)
  - ACIDOSIS [None]
  - HYPERKALAEMIA [None]
  - HYPOMAGNESAEMIA [None]
  - METABOLIC ACIDOSIS [None]
  - RENAL FAILURE ACUTE [None]
  - RENAL TUBULAR DISORDER [None]
  - RESPIRATORY ACIDOSIS [None]
  - SINUS BRADYCARDIA [None]
